FAERS Safety Report 11246382 (Version 1)
Quarter: 2015Q3

REPORT INFORMATION
  Report Type: Spontaneous
  Country: US (occurrence: US)
  Receive Date: 20150708
  Receipt Date: 20150708
  Transmission Date: 20151125
  Serious: Yes (Other)
  Sender: FDA-Public Use
  Company Number: US-PFIZER INC-2015219523

PATIENT
  Age: 57 Year
  Sex: Female

DRUGS (1)
  1. IBRANCE [Suspect]
     Active Substance: PALBOCICLIB
     Indication: BREAST CANCER
     Dosage: 100 MG, DAILY WITH FOOD FOR 21 DAYS, 7 DAYS OFF
     Route: 048
     Dates: start: 20150603

REACTIONS (3)
  - Respiratory tract infection [Unknown]
  - Alopecia [Unknown]
  - Pain of skin [Unknown]
